FAERS Safety Report 24991671 (Version 2)
Quarter: 2025Q1

REPORT INFORMATION
  Report Type: Spontaneous
  Country: CA (occurrence: CA)
  Receive Date: 20250220
  Receipt Date: 20250325
  Transmission Date: 20250408
  Serious: Yes (Death, Life-Threatening, Hospitalization, Disabling, Congenital Anomaly, Other)
  Sender: MYLAN
  Company Number: CA-MYLANLABS-2025M1011631

PATIENT
  Sex: Female
  Weight: 96 kg

DRUGS (485)
  1. CELEBREX [Suspect]
     Active Substance: CELECOXIB
     Indication: Arthritis
     Dosage: 1 DOSAGE FORM, QD (1 EVERY 1 DAY)
  2. CELEBREX [Suspect]
     Active Substance: CELECOXIB
     Indication: Rheumatoid arthritis
     Dosage: 2 DOSAGE FORM, QD (1 EVERY 1 DAY)
  3. CELEBREX [Suspect]
     Active Substance: CELECOXIB
     Dosage: 20 MILLIGRAM, QD (1 EVERY 1 DAYS)
  4. CELEBREX [Suspect]
     Active Substance: CELECOXIB
     Dosage: 2 DOSAGE FORM, BID (1 EVERY 24 HOURS)
  5. CELEBREX [Suspect]
     Active Substance: CELECOXIB
  6. CELEBREX [Suspect]
     Active Substance: CELECOXIB
  7. CELEBREX [Suspect]
     Active Substance: CELECOXIB
     Dosage: 1 DOSAGE FORM, QD (1 EVERY 1 DAY)
  8. CELEBREX [Suspect]
     Active Substance: CELECOXIB
     Dosage: 2 DOSAGE FORM, QD (1 EVERY 1 DAY)
  9. VITAMIN C [Suspect]
     Active Substance: ASCORBIC ACID
     Indication: Product used for unknown indication
  10. CELEBREX [Suspect]
     Active Substance: CELECOXIB
     Indication: Rheumatoid arthritis
  11. CELEBREX [Suspect]
     Active Substance: CELECOXIB
     Indication: Arthritis
  12. CELEBREX [Suspect]
     Active Substance: CELECOXIB
     Dosage: 1 DOSAGE FORM, QD
  13. CELEBREX [Suspect]
     Active Substance: CELECOXIB
     Dosage: 2 DOSAGE FORM, QD
  14. CELEBREX [Suspect]
     Active Substance: CELECOXIB
  15. CELEBREX [Suspect]
     Active Substance: CELECOXIB
  16. PREDNISONE [Suspect]
     Active Substance: PREDNISONE
     Indication: Rheumatoid arthritis
  17. PREDNISONE [Suspect]
     Active Substance: PREDNISONE
     Indication: Psoriatic arthropathy
  18. PREDNISONE [Suspect]
     Active Substance: PREDNISONE
     Indication: Condition aggravated
  19. PREDNISONE [Suspect]
     Active Substance: PREDNISONE
  20. PREDNISONE [Suspect]
     Active Substance: PREDNISONE
  21. PREDNISONE [Suspect]
     Active Substance: PREDNISONE
  22. PREDNISONE [Suspect]
     Active Substance: PREDNISONE
  23. PREDNISONE [Suspect]
     Active Substance: PREDNISONE
  24. PREDNISONE [Suspect]
     Active Substance: PREDNISONE
  25. CETIRIZINE [Suspect]
     Active Substance: CETIRIZINE HYDROCHLORIDE
     Indication: Rheumatoid arthritis
  26. CETIRIZINE [Suspect]
     Active Substance: CETIRIZINE HYDROCHLORIDE
  27. CETIRIZINE [Suspect]
     Active Substance: CETIRIZINE HYDROCHLORIDE
  28. CETIRIZINE [Suspect]
     Active Substance: CETIRIZINE HYDROCHLORIDE
     Dosage: 10 MILLIGRAM, QD
  29. CETIRIZINE [Suspect]
     Active Substance: CETIRIZINE HYDROCHLORIDE
  30. CETIRIZINE [Suspect]
     Active Substance: CETIRIZINE HYDROCHLORIDE
  31. CETIRIZINE [Suspect]
     Active Substance: CETIRIZINE HYDROCHLORIDE
  32. CETIRIZINE [Suspect]
     Active Substance: CETIRIZINE HYDROCHLORIDE
  33. CETIRIZINE HYDROCHLORIDE [Suspect]
     Active Substance: CETIRIZINE HYDROCHLORIDE
     Indication: Rheumatoid arthritis
  34. CETIRIZINE HYDROCHLORIDE [Suspect]
     Active Substance: CETIRIZINE HYDROCHLORIDE
  35. CETIRIZINE HYDROCHLORIDE [Suspect]
     Active Substance: CETIRIZINE HYDROCHLORIDE
  36. DESOXIMETASONE [Suspect]
     Active Substance: DESOXIMETASONE
     Indication: Rheumatoid arthritis
     Dosage: 25 MILLIGRAM, QW (1 EVERY 1 WEEKS)
  37. DESOXIMETASONE [Suspect]
     Active Substance: DESOXIMETASONE
  38. DESOXIMETASONE [Suspect]
     Active Substance: DESOXIMETASONE
  39. DESOXIMETASONE [Suspect]
     Active Substance: DESOXIMETASONE
  40. DESOXIMETASONE [Suspect]
     Active Substance: DESOXIMETASONE
  41. DESOXIMETASONE [Suspect]
     Active Substance: DESOXIMETASONE
  42. DESOXIMETASONE [Suspect]
     Active Substance: DESOXIMETASONE
  43. HYDROCORTISONE [Suspect]
     Active Substance: HYDROCORTISONE
     Indication: Rheumatoid arthritis
  44. HYDROCORTISONE [Suspect]
     Active Substance: HYDROCORTISONE
     Indication: Rheumatoid arthritis
  45. HYDROCORTISONE [Suspect]
     Active Substance: HYDROCORTISONE
  46. HYDROCORTISONE [Suspect]
     Active Substance: HYDROCORTISONE
  47. HYRIMOZ [Suspect]
     Active Substance: ADALIMUMAB-ADAZ
     Indication: Rheumatoid arthritis
  48. HYRIMOZ [Suspect]
     Active Substance: ADALIMUMAB-ADAZ
  49. HYRIMOZ [Suspect]
     Active Substance: ADALIMUMAB-ADAZ
     Indication: Rheumatoid arthritis
  50. LEFLUNOMIDE [Suspect]
     Active Substance: LEFLUNOMIDE
     Indication: Rheumatoid arthritis
  51. LEFLUNOMIDE [Suspect]
     Active Substance: LEFLUNOMIDE
  52. LEFLUNOMIDE [Suspect]
     Active Substance: LEFLUNOMIDE
  53. LEFLUNOMIDE [Suspect]
     Active Substance: LEFLUNOMIDE
     Dosage: 10 MILLIGRAM, QD
  54. LEFLUNOMIDE [Suspect]
     Active Substance: LEFLUNOMIDE
     Dosage: 10 MILLIGRAM, QD
  55. LEFLUNOMIDE [Suspect]
     Active Substance: LEFLUNOMIDE
     Dosage: 20 MILLIGRAM, QD
  56. NAPROXEN [Suspect]
     Active Substance: NAPROXEN
     Indication: Rheumatoid arthritis
     Dosage: 500 MILLIGRAM, BID (2 EVERY 1 DAY)
  57. NAPROXEN [Suspect]
     Active Substance: NAPROXEN
     Indication: Rheumatoid arthritis
     Dosage: 500 MILLIGRAM, QD (1 EVERY 1 DAYS)
  58. HYDROCORTISONE [Suspect]
     Active Substance: HYDROCORTISONE
     Indication: Rheumatoid arthritis
  59. STELARA [Suspect]
     Active Substance: USTEKINUMAB
     Indication: Product used for unknown indication
  60. STELARA [Suspect]
     Active Substance: USTEKINUMAB
  61. HYDROCORTISONE [Suspect]
     Active Substance: HYDROCORTISONE
     Indication: Rheumatoid arthritis
  62. HYDROCORTISONE [Suspect]
     Active Substance: HYDROCORTISONE
  63. SULFASALAZINE [Suspect]
     Active Substance: SULFASALAZINE
     Indication: Rheumatoid arthritis
     Dosage: 500 MILLIGRAM, QD (1 EVERY 1 DAYS)
  64. SULFASALAZINE [Suspect]
     Active Substance: SULFASALAZINE
  65. SULFASALAZINE [Suspect]
     Active Substance: SULFASALAZINE
  66. SULFASALAZINE [Suspect]
     Active Substance: SULFASALAZINE
  67. SULFASALAZINE [Suspect]
     Active Substance: SULFASALAZINE
     Dosage: 1 GRAM, BID (2 EVERY 1 DAYS)
  68. SULFASALAZINE [Suspect]
     Active Substance: SULFASALAZINE
  69. SULFASALAZINE [Suspect]
     Active Substance: SULFASALAZINE
  70. SULFASALAZINE [Suspect]
     Active Substance: SULFASALAZINE
  71. SULFASALAZINE [Suspect]
     Active Substance: SULFASALAZINE
     Dosage: 300 MILLIGRAM, QD
  72. SULFASALAZINE [Suspect]
     Active Substance: SULFASALAZINE
  73. SULFASALAZINE [Suspect]
     Active Substance: SULFASALAZINE
     Dosage: 1000 MILLIGRAM, BID
  74. SULFASALAZINE [Suspect]
     Active Substance: SULFASALAZINE
     Dosage: 2 GRAM, QD
  75. SULFASALAZINE [Suspect]
     Active Substance: SULFASALAZINE
  76. SULFASALAZINE [Suspect]
     Active Substance: SULFASALAZINE
     Dosage: 1 DOSAGE FORM, BID
  77. SULFASALAZINE [Suspect]
     Active Substance: SULFASALAZINE
     Dosage: 1 GRAM, QD
  78. SULFASALAZINE [Suspect]
     Active Substance: SULFASALAZINE
  79. SULFASALAZINE [Suspect]
     Active Substance: SULFASALAZINE
  80. SULFASALAZINE [Suspect]
     Active Substance: SULFASALAZINE
  81. SULFASALAZINE [Suspect]
     Active Substance: SULFASALAZINE
  82. SULFASALAZINE [Suspect]
     Active Substance: SULFASALAZINE
  83. SULFASALAZINE [Suspect]
     Active Substance: SULFASALAZINE
     Dosage: 1 GRAM, BID
  84. SULFASALAZINE [Suspect]
     Active Substance: SULFASALAZINE
     Dosage: 1000 MILLIGRAM, BID
  85. SULFASALAZINE [Suspect]
     Active Substance: SULFASALAZINE
     Dosage: UNK, QD
  86. SULFASALAZINE [Suspect]
     Active Substance: SULFASALAZINE
  87. SULFASALAZINE [Suspect]
     Active Substance: SULFASALAZINE
     Dosage: 2 DOSAGE FORM, QD
  88. TOFACITINIB CITRATE [Suspect]
     Active Substance: TOFACITINIB CITRATE
     Indication: Rheumatoid arthritis
     Dosage: 5 MILLIGRAM, BID (2 EVERY 1 DAY)
  89. TOFACITINIB CITRATE [Suspect]
     Active Substance: TOFACITINIB CITRATE
  90. TOFACITINIB CITRATE [Suspect]
     Active Substance: TOFACITINIB CITRATE
     Dosage: 0.5 MILLIGRAM, QD
  91. TOFACITINIB CITRATE [Suspect]
     Active Substance: TOFACITINIB CITRATE
     Dosage: 10 MILLIGRAM, QD
  92. TOFACITINIB CITRATE [Suspect]
     Active Substance: TOFACITINIB CITRATE
     Dosage: 5 MILLIGRAM, QD
  93. TOFACITINIB CITRATE [Suspect]
     Active Substance: TOFACITINIB CITRATE
     Dosage: 5 MILLIGRAM, QW
  94. TOFACITINIB CITRATE [Suspect]
     Active Substance: TOFACITINIB CITRATE
     Dosage: 5 MILLIGRAM, QD
  95. TRIPROLIDINE HYDROCHLORIDE [Suspect]
     Active Substance: TRIPROLIDINE HYDROCHLORIDE
     Indication: Product used for unknown indication
  96. ERELZI [Suspect]
     Active Substance: ETANERCEPT-SZZS
     Indication: Rheumatoid arthritis
  97. ERELZI [Suspect]
     Active Substance: ETANERCEPT-SZZS
  98. GOLIMUMAB [Suspect]
     Active Substance: GOLIMUMAB
     Indication: Rheumatoid arthritis
  99. GOLIMUMAB [Suspect]
     Active Substance: GOLIMUMAB
  100. CALCIUM CHLORIDE [Suspect]
     Active Substance: CALCIUM CHLORIDE
     Indication: Product used for unknown indication
  101. METHOTREXATE SODIUM [Suspect]
     Active Substance: METHOTREXATE SODIUM
     Indication: Rheumatoid arthritis
     Dosage: 20 MILLIGRAM, QD
  102. METHOTREXATE SODIUM [Suspect]
     Active Substance: METHOTREXATE SODIUM
  103. METHOTREXATE SODIUM [Suspect]
     Active Substance: METHOTREXATE SODIUM
  104. METHOTREXATE SODIUM [Suspect]
     Active Substance: METHOTREXATE SODIUM
     Dosage: 25 MILLIGRAM, QW
  105. METHOTREXATE SODIUM [Suspect]
     Active Substance: METHOTREXATE SODIUM
     Dosage: 20 MILLIGRAM, QD
  106. METHOTREXATE SODIUM [Suspect]
     Active Substance: METHOTREXATE SODIUM
     Dosage: 20 MILLIGRAM, QD
  107. METHOTREXATE SODIUM [Suspect]
     Active Substance: METHOTREXATE SODIUM
  108. METHOTREXATE SODIUM [Suspect]
     Active Substance: METHOTREXATE SODIUM
  109. METHOTREXATE SODIUM [Suspect]
     Active Substance: METHOTREXATE SODIUM
     Dosage: 20 MILLIGRAM, QW
  110. METHOTREXATE SODIUM [Suspect]
     Active Substance: METHOTREXATE SODIUM
  111. METHOTREXATE SODIUM [Suspect]
     Active Substance: METHOTREXATE SODIUM
  112. METHOTREXATE SODIUM [Suspect]
     Active Substance: METHOTREXATE SODIUM
  113. METHOTREXATE SODIUM [Suspect]
     Active Substance: METHOTREXATE SODIUM
     Dosage: 15 MILLIGRAM, QD
  114. METHOTREXATE SODIUM [Suspect]
     Active Substance: METHOTREXATE SODIUM
  115. METHOTREXATE SODIUM [Suspect]
     Active Substance: METHOTREXATE SODIUM
     Dosage: UNK (1 EVERY 1 DAYS)
  116. METHOTREXATE SODIUM [Suspect]
     Active Substance: METHOTREXATE SODIUM
     Dosage: 20 MILLIGRAM, QD (1 EVERY 1 DAYS)
  117. METHOTREXATE SODIUM [Suspect]
     Active Substance: METHOTREXATE SODIUM
     Dosage: 25 MILLIGRAM, QW (1 EVERY 1 WEEKS)
  118. METHOTREXATE SODIUM [Suspect]
     Active Substance: METHOTREXATE SODIUM
  119. METHOTREXATE SODIUM [Suspect]
     Active Substance: METHOTREXATE SODIUM
  120. ABATACEPT [Suspect]
     Active Substance: ABATACEPT
     Indication: Product used for unknown indication
  121. ABATACEPT [Suspect]
     Active Substance: ABATACEPT
  122. PSEUDOEPHEDRINE HYDROCHLORIDE [Suspect]
     Active Substance: PSEUDOEPHEDRINE HYDROCHLORIDE
     Indication: Rheumatoid arthritis
  123. PSEUDOEPHEDRINE HYDROCHLORIDE [Suspect]
     Active Substance: PSEUDOEPHEDRINE HYDROCHLORIDE
  124. PSEUDOEPHEDRINE HYDROCHLORIDE [Suspect]
     Active Substance: PSEUDOEPHEDRINE HYDROCHLORIDE
  125. CETIRIZINE HYDROCHLORIDE AND PSEUDOEPHEDRINE HYDROCHLORIDE [Suspect]
     Active Substance: CETIRIZINE HYDROCHLORIDE\PSEUDOEPHEDRINE HYDROCHLORIDE
     Indication: Rheumatoid arthritis
  126. CETIRIZINE HYDROCHLORIDE AND PSEUDOEPHEDRINE HYDROCHLORIDE [Suspect]
     Active Substance: CETIRIZINE HYDROCHLORIDE\PSEUDOEPHEDRINE HYDROCHLORIDE
     Indication: Off label use
  127. DICLOFENAC POTASSIUM [Suspect]
     Active Substance: DICLOFENAC POTASSIUM
     Indication: Product used for unknown indication
  128. DICLOFENAC POTASSIUM [Suspect]
     Active Substance: DICLOFENAC POTASSIUM
  129. TRAMADOL HYDROCHLORIDE [Suspect]
     Active Substance: TRAMADOL HYDROCHLORIDE
     Indication: Product used for unknown indication
  130. ETANERCEPT [Suspect]
     Active Substance: ETANERCEPT
     Indication: Rheumatoid arthritis
  131. NAPROXEN SODIUM [Suspect]
     Active Substance: NAPROXEN SODIUM
     Indication: Rheumatoid arthritis
     Dosage: 500 MILLIGRAM, BID
  132. NAPROXEN SODIUM [Suspect]
     Active Substance: NAPROXEN SODIUM
     Dosage: 1000 MILLIGRAM, QD (1 EVERY 1 DAY)
  133. NAPROXEN SODIUM [Suspect]
     Active Substance: NAPROXEN SODIUM
     Dosage: 1000 MILLIGRAM, QD (1 EVERY 1 DAY)
  134. NAPROXEN SODIUM [Suspect]
     Active Substance: NAPROXEN SODIUM
  135. NAPROXEN SODIUM [Suspect]
     Active Substance: NAPROXEN SODIUM
  136. PREDNISONE [Suspect]
     Active Substance: PREDNISONE
     Indication: Rheumatoid arthritis
  137. ADALIMUMAB [Suspect]
     Active Substance: ADALIMUMAB
     Indication: Rheumatoid arthritis
  138. ADALIMUMAB [Suspect]
     Active Substance: ADALIMUMAB
  139. DOXYCYCLINE [Suspect]
     Active Substance: DOXYCYCLINE
     Indication: Product used for unknown indication
  140. CHLORAPREP [Suspect]
     Active Substance: CHLORHEXIDINE GLUCONATE\ISOPROPYL ALCOHOL
     Indication: Product used for unknown indication
  141. VITAMIN D3 [Suspect]
     Active Substance: CHOLECALCIFEROL
     Indication: Product used for unknown indication
  142. VITAMIN D3 [Suspect]
     Active Substance: CHOLECALCIFEROL
  143. DIETARY SUPPLEMENT [Suspect]
     Active Substance: DIETARY SUPPLEMENT
     Indication: Product used for unknown indication
  144. NEOMYCIN [Suspect]
     Active Substance: NEOMYCIN
     Indication: Product used for unknown indication
  145. PANTOPRAZOLE SODIUM ANHYDROUS [Suspect]
     Active Substance: PANTOPRAZOLE SODIUM ANHYDROUS
     Indication: Product used for unknown indication
  146. PANTOPRAZOLE SODIUM ANHYDROUS [Suspect]
     Active Substance: PANTOPRAZOLE SODIUM ANHYDROUS
  147. DIETARY SUPPLEMENT\HERBALS [Suspect]
     Active Substance: DIETARY SUPPLEMENT\HERBALS
     Indication: Product used for unknown indication
  148. SALICYLIC ACID [Suspect]
     Active Substance: SALICYLIC ACID
     Indication: Product used for unknown indication
  149. SODIUM FLUORIDE [Suspect]
     Active Substance: SODIUM FLUORIDE
     Indication: Product used for unknown indication
  150. THYMOL [Suspect]
     Active Substance: THYMOL
     Indication: Product used for unknown indication
  151. THYMOL [Suspect]
     Active Substance: THYMOL
  152. TRIAMCINOLONE ACETONIDE [Suspect]
     Active Substance: TRIAMCINOLONE ACETONIDE
     Indication: Product used for unknown indication
  153. TRICLOSAN [Suspect]
     Active Substance: TRICLOSAN
     Indication: Product used for unknown indication
  154. SULFAMETHOXAZOLE\TRIMETHOPRIM [Suspect]
     Active Substance: SULFAMETHOXAZOLE\TRIMETHOPRIM
     Indication: Product used for unknown indication
  155. SULFAMETHOXAZOLE\TRIMETHOPRIM [Suspect]
     Active Substance: SULFAMETHOXAZOLE\TRIMETHOPRIM
  156. TYROTHRICIN [Suspect]
     Active Substance: TYROTHRICIN
     Indication: Product used for unknown indication
  157. TYROTHRICIN [Suspect]
     Active Substance: TYROTHRICIN
  158. OXYCODONE HYDROCHLORIDE [Suspect]
     Active Substance: OXYCODONE HYDROCHLORIDE
     Indication: Product used for unknown indication
  159. PHENYLEPHRINE HYDROCHLORIDE [Suspect]
     Active Substance: PHENYLEPHRINE HYDROCHLORIDE
     Indication: Rheumatoid arthritis
  160. PHENYLEPHRINE HYDROCHLORIDE [Suspect]
     Active Substance: PHENYLEPHRINE HYDROCHLORIDE
  161. PHENYLEPHRINE HYDROCHLORIDE [Suspect]
     Active Substance: PHENYLEPHRINE HYDROCHLORIDE
     Dosage: 1000 MILLIGRAM, BID (1 EVERY 12 HOURS)
  162. AIMOVIG [Suspect]
     Active Substance: ERENUMAB-AOOE
     Indication: Product used for unknown indication
  163. ENBREL [Suspect]
     Active Substance: ETANERCEPT
     Indication: Product used for unknown indication
     Dosage: 50 MILLIGRAM, QW
  164. ENBREL [Suspect]
     Active Substance: ETANERCEPT
  165. ENBREL [Suspect]
     Active Substance: ETANERCEPT
     Dosage: 20 MILLIGRAM, QW
  166. ENBREL [Suspect]
     Active Substance: ETANERCEPT
     Dosage: 20 MILLIGRAM, QD
  167. ENBREL [Suspect]
     Active Substance: ETANERCEPT
  168. ENBREL [Suspect]
     Active Substance: ETANERCEPT
     Dosage: 50 MILLIGRAM, QD
  169. ENBREL [Suspect]
     Active Substance: ETANERCEPT
  170. ENBREL [Suspect]
     Active Substance: ETANERCEPT
  171. ENBREL [Suspect]
     Active Substance: ETANERCEPT
  172. ENBREL [Suspect]
     Active Substance: ETANERCEPT
  173. ENBREL [Suspect]
     Active Substance: ETANERCEPT
     Indication: Product used for unknown indication
     Dosage: 25 MILLIGRAM, QD
  174. ENBREL [Suspect]
     Active Substance: ETANERCEPT
     Dosage: 25 MILLIGRAM, QD
  175. ENBREL [Suspect]
     Active Substance: ETANERCEPT
  176. ENBREL [Suspect]
     Active Substance: ETANERCEPT
     Dosage: 1 DOSAGE FORM, QW
  177. OTEZLA [Suspect]
     Active Substance: APREMILAST
     Indication: Rheumatoid arthritis
     Dosage: 3 MILLIGRAM, BID
  178. OTEZLA [Suspect]
     Active Substance: APREMILAST
  179. OTEZLA [Suspect]
     Active Substance: APREMILAST
     Dosage: 6 MILLIGRAM, QD
  180. OTEZLA [Suspect]
     Active Substance: APREMILAST
  181. OTEZLA [Suspect]
     Active Substance: APREMILAST
     Dosage: 6 MILLIGRAM, QD
  182. OTEZLA [Suspect]
     Active Substance: APREMILAST
  183. ADALIMUMAB [Suspect]
     Active Substance: ADALIMUMAB
     Indication: Rheumatoid arthritis
  184. ADALIMUMAB [Suspect]
     Active Substance: ADALIMUMAB
  185. ADALIMUMAB [Suspect]
     Active Substance: ADALIMUMAB
  186. ADALIMUMAB [Suspect]
     Active Substance: ADALIMUMAB
     Indication: Rheumatoid arthritis
  187. ADALIMUMAB [Suspect]
     Active Substance: ADALIMUMAB
     Indication: Product used for unknown indication
  188. RITUXIMAB [Suspect]
     Active Substance: RITUXIMAB
     Indication: Rheumatoid arthritis
  189. RITUXIMAB [Suspect]
     Active Substance: RITUXIMAB
  190. RITUXIMAB [Suspect]
     Active Substance: RITUXIMAB
  191. RITUXIMAB [Suspect]
     Active Substance: RITUXIMAB
  192. RITUXIMAB [Suspect]
     Active Substance: RITUXIMAB
  193. RITUXIMAB [Suspect]
     Active Substance: RITUXIMAB
  194. RITUXIMAB [Suspect]
     Active Substance: RITUXIMAB
     Indication: Product used for unknown indication
  195. INFLIXIMAB [Suspect]
     Active Substance: INFLIXIMAB
     Indication: Rheumatoid arthritis
  196. INFLIXIMAB [Suspect]
     Active Substance: INFLIXIMAB
     Indication: Product used for unknown indication
  197. INFLIXIMAB [Suspect]
     Active Substance: INFLIXIMAB
  198. INFLIXIMAB [Suspect]
     Active Substance: INFLIXIMAB
     Indication: Product used for unknown indication
  199. PREDNISONE [Suspect]
     Active Substance: PREDNISONE
     Indication: Rheumatoid arthritis
  200. PREDNISONE [Suspect]
     Active Substance: PREDNISONE
  201. PREDNISONE [Suspect]
     Active Substance: PREDNISONE
  202. PREDNISONE [Suspect]
     Active Substance: PREDNISONE
  203. PREDNISONE [Suspect]
     Active Substance: PREDNISONE
  204. PREDNISONE [Suspect]
     Active Substance: PREDNISONE
     Indication: Product used for unknown indication
  205. PREDNISONE [Suspect]
     Active Substance: PREDNISONE
  206. PREDNISONE [Suspect]
     Active Substance: PREDNISONE
  207. PREDNISONE [Suspect]
     Active Substance: PREDNISONE
     Dosage: 50 MILLIGRAM, QD
  208. PREDNISONE [Suspect]
     Active Substance: PREDNISONE
  209. PREDNISONE [Suspect]
     Active Substance: PREDNISONE
  210. PREDNISONE [Suspect]
     Active Substance: PREDNISONE
  211. COSENTYX [Suspect]
     Active Substance: SECUKINUMAB
     Indication: Psoriatic arthropathy
  212. COSENTYX [Suspect]
     Active Substance: SECUKINUMAB
     Indication: Rheumatoid arthritis
  213. DICLOFENAC SODIUM [Suspect]
     Active Substance: DICLOFENAC SODIUM
     Indication: Rheumatoid arthritis
  214. DICLOFENAC SODIUM [Suspect]
     Active Substance: DICLOFENAC SODIUM
  215. DICLOFENAC SODIUM [Suspect]
     Active Substance: DICLOFENAC SODIUM
     Dosage: 50 MILLIGRAM, QD
  216. DICLOFENAC SODIUM [Suspect]
     Active Substance: DICLOFENAC SODIUM
  217. DICLOFENAC SODIUM [Suspect]
     Active Substance: DICLOFENAC SODIUM
  218. DICLOFENAC SODIUM [Suspect]
     Active Substance: DICLOFENAC SODIUM
  219. DICLOFENAC SODIUM [Suspect]
     Active Substance: DICLOFENAC SODIUM
     Indication: Rheumatoid arthritis
  220. ACETAMINOPHEN AND CODEINE [Suspect]
     Active Substance: ACETAMINOPHEN\CODEINE PHOSPHATE
     Indication: Rheumatoid arthritis
  221. ACETAMINOPHEN AND CODEINE [Suspect]
     Active Substance: ACETAMINOPHEN\CODEINE PHOSPHATE
  222. ACETAMINOPHEN [Suspect]
     Active Substance: ACETAMINOPHEN
     Indication: Product used for unknown indication
  223. ACETAMINOPHEN [Suspect]
     Active Substance: ACETAMINOPHEN
     Indication: Product used for unknown indication
  224. ACETAMINOPHEN [Suspect]
     Active Substance: ACETAMINOPHEN
     Indication: Product used for unknown indication
  225. ACETAMINOPHEN\OXYCODONE HYDROCHLORIDE [Suspect]
     Active Substance: ACETAMINOPHEN\OXYCODONE HYDROCHLORIDE
     Indication: Product used for unknown indication
  226. ACTEMRA [Suspect]
     Active Substance: TOCILIZUMAB
     Indication: Product used for unknown indication
  227. ACTEMRA [Suspect]
     Active Substance: TOCILIZUMAB
  228. ACTEMRA [Suspect]
     Active Substance: TOCILIZUMAB
  229. ACTEMRA [Suspect]
     Active Substance: TOCILIZUMAB
  230. ACTEMRA [Suspect]
     Active Substance: TOCILIZUMAB
  231. ACTEMRA [Suspect]
     Active Substance: TOCILIZUMAB
  232. ACTEMRA [Suspect]
     Active Substance: TOCILIZUMAB
  233. ACTEMRA [Suspect]
     Active Substance: TOCILIZUMAB
  234. ACTEMRA [Suspect]
     Active Substance: TOCILIZUMAB
     Indication: Product used for unknown indication
  235. ACTEMRA [Suspect]
     Active Substance: TOCILIZUMAB
     Indication: Product used for unknown indication
  236. ACTEMRA [Suspect]
     Active Substance: TOCILIZUMAB
  237. ACTEMRA [Suspect]
     Active Substance: TOCILIZUMAB
     Indication: Product used for unknown indication
  238. ALENDRONIC ACID [Suspect]
     Active Substance: ALENDRONIC ACID
     Indication: Rheumatoid arthritis
  239. ALENDRONIC ACID [Suspect]
     Active Substance: ALENDRONIC ACID
  240. ARAVA [Suspect]
     Active Substance: LEFLUNOMIDE
     Indication: Rheumatoid arthritis
  241. ARAVA [Suspect]
     Active Substance: LEFLUNOMIDE
  242. ARAVA [Suspect]
     Active Substance: LEFLUNOMIDE
     Dosage: 20 MILLIGRAM, QD
  243. PANTOPRAZOLE SODIUM [Suspect]
     Active Substance: PANTOPRAZOLE SODIUM
     Indication: Product used for unknown indication
  244. PANTOPRAZOLE SODIUM [Suspect]
     Active Substance: PANTOPRAZOLE SODIUM
  245. ATOMOXETINE HYDROCHLORIDE [Suspect]
     Active Substance: ATOMOXETINE HYDROCHLORIDE
     Indication: Migraine
     Dosage: 1 DOSAGE FORM, QD
  246. ATOMOXETINE HYDROCHLORIDE [Suspect]
     Active Substance: ATOMOXETINE HYDROCHLORIDE
     Dosage: 2 DOSAGE FORM, QD
  247. CHLORHEXIDINE GLUCONATE\ISOPROPYL ALCOHOL [Suspect]
     Active Substance: CHLORHEXIDINE GLUCONATE\ISOPROPYL ALCOHOL
     Indication: Product used for unknown indication
  248. CHLORHEXIDINE GLUCONATE\ISOPROPYL ALCOHOL [Suspect]
     Active Substance: CHLORHEXIDINE GLUCONATE\ISOPROPYL ALCOHOL
  249. CHLORHEXIDINE GLUCONATE\ISOPROPYL ALCOHOL [Suspect]
     Active Substance: CHLORHEXIDINE GLUCONATE\ISOPROPYL ALCOHOL
     Indication: Product used for unknown indication
  250. BERINERT [Suspect]
     Active Substance: HUMAN C1-ESTERASE INHIBITOR
     Indication: Product used for unknown indication
  251. BOTULINUM TOXIN TYPE A [Suspect]
     Active Substance: BOTULINUM TOXIN TYPE A
     Indication: Product used for unknown indication
  252. BUTRANS [Suspect]
     Active Substance: BUPRENORPHINE
     Indication: Product used for unknown indication
  253. CANDESARTAN [Suspect]
     Active Substance: CANDESARTAN
     Indication: Migraine
  254. CERTOLIZUMAB PEGOL [Suspect]
     Active Substance: CERTOLIZUMAB PEGOL
     Indication: Psoriasis
  255. CERTOLIZUMAB PEGOL [Suspect]
     Active Substance: CERTOLIZUMAB PEGOL
  256. CERTOLIZUMAB PEGOL [Suspect]
     Active Substance: CERTOLIZUMAB PEGOL
  257. CETIRIZINE HYDROCHLORIDE [Suspect]
     Active Substance: CETIRIZINE HYDROCHLORIDE
     Indication: Off label use
  258. CETIRIZINE HYDROCHLORIDE [Suspect]
     Active Substance: CETIRIZINE HYDROCHLORIDE
  259. CETIRIZINE HYDROCHLORIDE [Suspect]
     Active Substance: CETIRIZINE HYDROCHLORIDE
  260. CETIRIZINE HYDROCHLORIDE [Suspect]
     Active Substance: CETIRIZINE HYDROCHLORIDE
     Dosage: 10 MILLIGRAM, QD
  261. CETIRIZINE HYDROCHLORIDE [Suspect]
     Active Substance: CETIRIZINE HYDROCHLORIDE
  262. CETIRIZINE HYDROCHLORIDE [Suspect]
     Active Substance: CETIRIZINE HYDROCHLORIDE
  263. SULFATHIAZOLE [Suspect]
     Active Substance: SULFATHIAZOLE
     Indication: Rheumatoid arthritis
  264. CHLORHEXIDINE GLUCONATE [Suspect]
     Active Substance: CHLORHEXIDINE GLUCONATE
     Indication: Product used for unknown indication
  265. CHLORHEXIDINE GLUCONATE [Suspect]
     Active Substance: CHLORHEXIDINE GLUCONATE
  266. CHLORHEXIDINE GLUCONATE [Suspect]
     Active Substance: CHLORHEXIDINE GLUCONATE
     Indication: Product used for unknown indication
  267. CIMZIA [Suspect]
     Active Substance: CERTOLIZUMAB PEGOL
     Indication: Rheumatoid arthritis
  268. CIMZIA [Suspect]
     Active Substance: CERTOLIZUMAB PEGOL
  269. CIMZIA [Suspect]
     Active Substance: CERTOLIZUMAB PEGOL
  270. CIMZIA [Suspect]
     Active Substance: CERTOLIZUMAB PEGOL
  271. CIMZIA [Suspect]
     Active Substance: CERTOLIZUMAB PEGOL
     Dosage: 1 DOSAGE FORM, QD
  272. CIMZIA [Suspect]
     Active Substance: CERTOLIZUMAB PEGOL
  273. DESOXIMETASONE [Suspect]
     Active Substance: DESOXIMETASONE
     Indication: Product used for unknown indication
  274. DESOXIMETASONE [Suspect]
     Active Substance: DESOXIMETASONE
  275. DESOXIMETASONE [Suspect]
     Active Substance: DESOXIMETASONE
  276. DESOXIMETASONE [Suspect]
     Active Substance: DESOXIMETASONE
     Indication: Product used for unknown indication
  277. DESOXIMETASONE [Suspect]
     Active Substance: DESOXIMETASONE
  278. DICLOFENAC DIETHYLAMINE [Suspect]
     Active Substance: DICLOFENAC DIETHYLAMINE
     Indication: Product used for unknown indication
  279. DICLOFENAC DIETHYLAMINE [Suspect]
     Active Substance: DICLOFENAC DIETHYLAMINE
  280. DOMPERIDONE MALEATE [Suspect]
     Active Substance: DOMPERIDONE MALEATE
     Indication: Product used for unknown indication
  281. ERELZI [Suspect]
     Active Substance: ETANERCEPT-SZZS
     Indication: Product used for unknown indication
  282. ERELZI [Suspect]
     Active Substance: ETANERCEPT-SZZS
     Indication: Rheumatoid arthritis
  283. ERELZI [Suspect]
     Active Substance: ETANERCEPT-SZZS
  284. ERELZI [Suspect]
     Active Substance: ETANERCEPT-SZZS
     Dosage: 50 MILLIGRAM, QW
  285. FLUMETHASONE PIVALATE [Suspect]
     Active Substance: FLUMETHASONE PIVALATE
     Indication: Product used for unknown indication
  286. FLUMETHASONE PIVALATE [Suspect]
     Active Substance: FLUMETHASONE PIVALATE
  287. FOLIC ACID [Suspect]
     Active Substance: FOLIC ACID
     Indication: Rheumatoid arthritis
  288. FOLIC ACID [Suspect]
     Active Substance: FOLIC ACID
  289. FOLIC ACID [Suspect]
     Active Substance: FOLIC ACID
  290. FOLIC ACID [Suspect]
     Active Substance: FOLIC ACID
  291. FOLIC ACID [Suspect]
     Active Substance: FOLIC ACID
  292. FOLIC ACID [Suspect]
     Active Substance: FOLIC ACID
  293. FOLIC ACID [Suspect]
     Active Substance: FOLIC ACID
  294. FOLIC ACID [Suspect]
     Active Substance: FOLIC ACID
  295. FOLIC ACID [Suspect]
     Active Substance: FOLIC ACID
  296. FOLIC ACID [Suspect]
     Active Substance: FOLIC ACID
  297. FOLIC ACID [Suspect]
     Active Substance: FOLIC ACID
  298. FOLIC ACID [Suspect]
     Active Substance: FOLIC ACID
     Indication: Rheumatoid arthritis
  299. FOLIC ACID [Suspect]
     Active Substance: FOLIC ACID
     Indication: Rheumatoid arthritis
  300. FOSAMAX [Suspect]
     Active Substance: ALENDRONATE SODIUM
     Indication: Product used for unknown indication
  301. GOLD [Suspect]
     Active Substance: GOLD
     Indication: Product used for unknown indication
  302. HYDROCORTISONE BUTYRATE [Suspect]
     Active Substance: HYDROCORTISONE BUTYRATE
     Indication: Rheumatoid arthritis
  303. HYDROXYCHLOROQUINE SULFATE [Suspect]
     Active Substance: HYDROXYCHLOROQUINE SULFATE
     Indication: Rheumatoid arthritis
     Dosage: 400 MILLIGRAM, QD
  304. HYDROXYCHLOROQUINE SULFATE [Suspect]
     Active Substance: HYDROXYCHLOROQUINE SULFATE
  305. HYDROXYCHLOROQUINE SULFATE [Suspect]
     Active Substance: HYDROXYCHLOROQUINE SULFATE
     Dosage: 400 MILLIGRAM, QD
  306. HYDROXYCHLOROQUINE SULFATE [Suspect]
     Active Substance: HYDROXYCHLOROQUINE SULFATE
     Dosage: 420 MILLIGRAM, QD
  307. HYDROXYCHLOROQUINE SULFATE [Suspect]
     Active Substance: HYDROXYCHLOROQUINE SULFATE
     Dosage: 420 MILLIGRAM, QD
  308. HYDROXYCHLOROQUINE SULFATE [Suspect]
     Active Substance: HYDROXYCHLOROQUINE SULFATE
  309. HYDROXYCHLOROQUINE SULFATE [Suspect]
     Active Substance: HYDROXYCHLOROQUINE SULFATE
  310. HYDROXYCHLOROQUINE SULFATE [Suspect]
     Active Substance: HYDROXYCHLOROQUINE SULFATE
     Dosage: 1 DOSAGE FORM, QD
  311. HYDROXYCHLOROQUINE SULFATE [Suspect]
     Active Substance: HYDROXYCHLOROQUINE SULFATE
  312. HYDROXYCHLOROQUINE SULFATE [Suspect]
     Active Substance: HYDROXYCHLOROQUINE SULFATE
     Dosage: 40 MILLIGRAM, QD
  313. CALCIUM ASCORBATE [Suspect]
     Active Substance: CALCIUM ASCORBATE
     Indication: Product used for unknown indication
  314. ALENDRONATE SODIUM\CHOLECALCIFEROL [Suspect]
     Active Substance: ALENDRONATE SODIUM\CHOLECALCIFEROL
     Indication: Rheumatoid arthritis
  315. HUMIRA [Suspect]
     Active Substance: ADALIMUMAB
     Indication: Rheumatoid arthritis
  316. HUMIRA [Suspect]
     Active Substance: ADALIMUMAB
  317. HUMIRA [Suspect]
     Active Substance: ADALIMUMAB
  318. HUMIRA [Suspect]
     Active Substance: ADALIMUMAB
  319. HUMIRA [Suspect]
     Active Substance: ADALIMUMAB
     Indication: Product used for unknown indication
  320. KEVZARA [Suspect]
     Active Substance: SARILUMAB
     Indication: Rheumatoid arthritis
  321. FLUMETHASONE [Suspect]
     Active Substance: FLUMETHASONE
     Indication: Product used for unknown indication
  322. CORTISONE [Suspect]
     Active Substance: CORTISONE
     Indication: Rheumatoid arthritis
  323. CORTISONE [Suspect]
     Active Substance: CORTISONE
  324. CORTISONE [Suspect]
     Active Substance: CORTISONE
  325. CORTISONE [Suspect]
     Active Substance: CORTISONE
     Indication: Rheumatoid arthritis
     Dosage: 25 MILLIGRAM, QD
  326. CORTISONE [Suspect]
     Active Substance: CORTISONE
     Indication: Rheumatoid arthritis
  327. CORTISONE [Suspect]
     Active Substance: CORTISONE
     Indication: Rheumatoid arthritis
  328. CORTISONE ACETATE [Suspect]
     Active Substance: CORTISONE ACETATE
     Indication: Rheumatoid arthritis
  329. CORTISONE ACETATE [Suspect]
     Active Substance: CORTISONE ACETATE
  330. CORTISONE ACETATE [Suspect]
     Active Substance: CORTISONE ACETATE
     Dosage: 25 MILLIGRAM, QD (1 EVERY 1 DAYS)
  331. CORTISONE ACETATE [Suspect]
     Active Substance: CORTISONE ACETATE
     Indication: Product used for unknown indication
  332. CORTISONE ACETATE [Suspect]
     Active Substance: CORTISONE ACETATE
     Indication: Product used for unknown indication
  333. CORTISONE ACETATE [Suspect]
     Active Substance: CORTISONE ACETATE
     Indication: Product used for unknown indication
  334. ALENDRONATE SODIUM [Suspect]
     Active Substance: ALENDRONATE SODIUM
     Indication: Rheumatoid arthritis
  335. ALENDRONATE SODIUM [Suspect]
     Active Substance: ALENDRONATE SODIUM
  336. SIMPONI [Suspect]
     Active Substance: GOLIMUMAB
     Indication: Rheumatoid arthritis
  337. SIMPONI [Suspect]
     Active Substance: GOLIMUMAB
     Indication: Prostatic specific antigen
  338. SIMPONI [Suspect]
     Active Substance: GOLIMUMAB
     Indication: Product used for unknown indication
  339. MAGNESIUM CITRATE [Suspect]
     Active Substance: MAGNESIUM CITRATE
     Indication: Product used for unknown indication
  340. CETIRIZINE HYDROCHLORIDE\PSEUDOEPHEDRINE HYDROCHLORIDE [Suspect]
     Active Substance: CETIRIZINE HYDROCHLORIDE\PSEUDOEPHEDRINE HYDROCHLORIDE
     Indication: Rheumatoid arthritis
  341. CETIRIZINE HYDROCHLORIDE\PSEUDOEPHEDRINE HYDROCHLORIDE [Suspect]
     Active Substance: CETIRIZINE HYDROCHLORIDE\PSEUDOEPHEDRINE HYDROCHLORIDE
     Indication: Off label use
  342. CETIRIZINE HYDROCHLORIDE\PSEUDOEPHEDRINE HYDROCHLORIDE [Suspect]
     Active Substance: CETIRIZINE HYDROCHLORIDE\PSEUDOEPHEDRINE HYDROCHLORIDE
     Indication: Product used for unknown indication
  343. CETIRIZINE HYDROCHLORIDE\PSEUDOEPHEDRINE HYDROCHLORIDE [Suspect]
     Active Substance: CETIRIZINE HYDROCHLORIDE\PSEUDOEPHEDRINE HYDROCHLORIDE
  344. CETIRIZINE HYDROCHLORIDE\PSEUDOEPHEDRINE HYDROCHLORIDE [Suspect]
     Active Substance: CETIRIZINE HYDROCHLORIDE\PSEUDOEPHEDRINE HYDROCHLORIDE
  345. CETIRIZINE HYDROCHLORIDE\PSEUDOEPHEDRINE HYDROCHLORIDE [Suspect]
     Active Substance: CETIRIZINE HYDROCHLORIDE\PSEUDOEPHEDRINE HYDROCHLORIDE
  346. TOPIRAMATE [Suspect]
     Active Substance: TOPIRAMATE
     Indication: Migraine
     Dosage: 25 MILLIGRAM, QD
  347. TOPIRAMATE [Suspect]
     Active Substance: TOPIRAMATE
     Dosage: 25 MILLIGRAM, QOD
  348. TOPIRAMATE [Suspect]
     Active Substance: TOPIRAMATE
     Dosage: 1 DOSAGE FORM, QOD
  349. TOPIRAMATE [Suspect]
     Active Substance: TOPIRAMATE
     Dosage: 3 MILLIGRAM, QD
  350. TOPIRAMATE [Suspect]
     Active Substance: TOPIRAMATE
     Dosage: 1 DOSAGE FORM, QD
  351. TOPIRAMATE [Suspect]
     Active Substance: TOPIRAMATE
     Dosage: 0.5 MILLIGRAM, QD
  352. TOPIRAMATE [Suspect]
     Active Substance: TOPIRAMATE
     Dosage: 10 MILLIGRAM, QD
  353. STELARA [Suspect]
     Active Substance: USTEKINUMAB
     Indication: Rheumatoid arthritis
  354. STELARA [Suspect]
     Active Substance: USTEKINUMAB
  355. STELARA [Suspect]
     Active Substance: USTEKINUMAB
  356. XELJANZ [Suspect]
     Active Substance: TOFACITINIB CITRATE
     Indication: Rheumatoid arthritis
  357. XELJANZ [Suspect]
     Active Substance: TOFACITINIB CITRATE
  358. XELJANZ [Suspect]
     Active Substance: TOFACITINIB CITRATE
     Dosage: 5 MILLIGRAM, BID
  359. XELJANZ [Suspect]
     Active Substance: TOFACITINIB CITRATE
     Dosage: 10 MILLIGRAM, BID
  360. XELJANZ [Suspect]
     Active Substance: TOFACITINIB CITRATE
     Dosage: 10 MILLIGRAM, BID
  361. XELJANZ [Suspect]
     Active Substance: TOFACITINIB CITRATE
     Dosage: 5 MILLIGRAM, BID
  362. XELJANZ [Suspect]
     Active Substance: TOFACITINIB CITRATE
     Dosage: 5 MILLIGRAM, QD
  363. LAMICTAL [Suspect]
     Active Substance: LAMOTRIGINE
     Indication: Product used for unknown indication
  364. LAMICTAL [Suspect]
     Active Substance: LAMOTRIGINE
  365. LAMICTAL [Suspect]
     Active Substance: LAMOTRIGINE
  366. MEGLUMINE [Suspect]
     Active Substance: MEGLUMINE
     Indication: Migraine
  367. METHOTREXATE [Suspect]
     Active Substance: METHOTREXATE
     Indication: Rheumatoid arthritis
     Dosage: 20 MILLIGRAM, QD
  368. METHOTREXATE [Suspect]
     Active Substance: METHOTREXATE
     Dosage: 25 MILLIGRAM, QD
  369. METHOTREXATE [Suspect]
     Active Substance: METHOTREXATE
  370. METHOTREXATE [Suspect]
     Active Substance: METHOTREXATE
  371. METHOTREXATE [Suspect]
     Active Substance: METHOTREXATE
  372. METHOTREXATE [Suspect]
     Active Substance: METHOTREXATE
     Dosage: 20 MILLIGRAM, QW
  373. METHOTREXATE [Suspect]
     Active Substance: METHOTREXATE
  374. METHOTREXATE [Suspect]
     Active Substance: METHOTREXATE
     Dosage: 20 MILLIGRAM, QD
  375. METHOTREXATE [Suspect]
     Active Substance: METHOTREXATE
     Dosage: 25 MILLIGRAM, QD
  376. METHOTREXATE [Suspect]
     Active Substance: METHOTREXATE
     Dosage: 225 MILLIGRAM, QD
  377. METHOTREXATE [Suspect]
     Active Substance: METHOTREXATE
     Dosage: 15 MILLIGRAM, QD
  378. METHOTREXATE [Suspect]
     Active Substance: METHOTREXATE
  379. METHOTREXATE [Suspect]
     Active Substance: METHOTREXATE
  380. METHOTREXATE [Suspect]
     Active Substance: METHOTREXATE
     Dosage: 25 MILLIGRAM, QW
  381. METHOTREXATE [Suspect]
     Active Substance: METHOTREXATE
     Dosage: 1 MILLIGRAM, QD
  382. METHOTREXATE [Suspect]
     Active Substance: METHOTREXATE
  383. METHOTREXATE [Suspect]
     Active Substance: METHOTREXATE
  384. METHOTREXATE [Suspect]
     Active Substance: METHOTREXATE
     Dosage: 15 MILLIGRAM, QD
  385. METHOTREXATE [Suspect]
     Active Substance: METHOTREXATE
  386. METHOTREXATE [Suspect]
     Active Substance: METHOTREXATE
     Dosage: 2 GRAM, QD
  387. METHOTREXATE [Suspect]
     Active Substance: METHOTREXATE
     Dosage: 50 MILLIGRAM, QD
  388. METHOTREXATE [Suspect]
     Active Substance: METHOTREXATE
  389. METHOTREXATE [Suspect]
     Active Substance: METHOTREXATE
     Indication: Rheumatoid arthritis
     Dosage: 25 MILLIGRAM, QW
  390. METHOTREXATE [Suspect]
     Active Substance: METHOTREXATE
  391. METHOTREXATE [Suspect]
     Active Substance: METHOTREXATE
     Indication: Rheumatoid arthritis
  392. METHYLPREDNISOLONE SODIUM SUCCINATE [Suspect]
     Active Substance: METHYLPREDNISOLONE SODIUM SUCCINATE
     Indication: Product used for unknown indication
  393. MYRBETRIQ [Suspect]
     Active Substance: MIRABEGRON
     Indication: Product used for unknown indication
     Dosage: 1 DOSAGE FORM, QD
  394. MYRBETRIQ [Suspect]
     Active Substance: MIRABEGRON
     Dosage: 1 DOSAGE FORM, QD
  395. NAPROXEN [Suspect]
     Active Substance: NAPROXEN
     Indication: Product used for unknown indication
     Dosage: 1000 MILLIGRAM, QD
  396. NUCALA [Suspect]
     Active Substance: MEPOLIZUMAB
     Indication: Product used for unknown indication
  397. ORENCIA [Suspect]
     Active Substance: ABATACEPT
     Indication: Product used for unknown indication
  398. ORENCIA [Suspect]
     Active Substance: ABATACEPT
  399. ORENCIA [Suspect]
     Active Substance: ABATACEPT
     Dosage: 17.86 MILLIGRAM, QD
  400. ORENCIA [Suspect]
     Active Substance: ABATACEPT
     Dosage: 125 MILLIGRAM, QW
  401. ORENCIA [Suspect]
     Active Substance: ABATACEPT
  402. ORENCIA [Suspect]
     Active Substance: ABATACEPT
     Indication: Product used for unknown indication
  403. ORENCIA [Suspect]
     Active Substance: ABATACEPT
  404. ORENCIA [Suspect]
     Active Substance: ABATACEPT
  405. ORENCIA [Suspect]
     Active Substance: ABATACEPT
  406. ORENCIA [Suspect]
     Active Substance: ABATACEPT
     Dosage: 17.88 MILLIGRAM, QD
  407. ORENCIA [Suspect]
     Active Substance: ABATACEPT
  408. ORENCIA [Suspect]
     Active Substance: ABATACEPT
     Indication: Product used for unknown indication
  409. OXYCODONE [Suspect]
     Active Substance: OXYCODONE
     Indication: Product used for unknown indication
  410. OXYCODONE TEREPHTHALATE [Suspect]
     Active Substance: OXYCODONE TEREPHTHALATE
     Indication: Product used for unknown indication
  411. HYDROCORTISONE ACETATE [Concomitant]
     Active Substance: HYDROCORTISONE ACETATE
     Indication: Rheumatoid arthritis
  412. HYDROCORTISONE ACETATE [Concomitant]
     Active Substance: HYDROCORTISONE ACETATE
  413. HYDROCORTISONE ACETATE [Concomitant]
     Active Substance: HYDROCORTISONE ACETATE
  414. SULFAMETHOXAZOLE AND TRIMETHOPRIM [Concomitant]
     Active Substance: SULFAMETHOXAZOLE\TRIMETHOPRIM
  415. Atasol [Concomitant]
  416. Atasol [Concomitant]
  417. XELJANZ [Concomitant]
     Active Substance: TOFACITINIB CITRATE
     Indication: Rheumatoid arthritis
     Dosage: 5 MILLIGRAM, BID
  418. XELJANZ [Concomitant]
     Active Substance: TOFACITINIB CITRATE
     Dosage: 5 MILLIGRAM, BID
  419. XELJANZ [Concomitant]
     Active Substance: TOFACITINIB CITRATE
     Dosage: 5 MILLIGRAM, BID
  420. XELJANZ [Concomitant]
     Active Substance: TOFACITINIB CITRATE
  421. XELJANZ [Concomitant]
     Active Substance: TOFACITINIB CITRATE
     Dosage: 10 MILLIGRAM, BID
  422. XELJANZ [Concomitant]
     Active Substance: TOFACITINIB CITRATE
  423. XELJANZ [Concomitant]
     Active Substance: TOFACITINIB CITRATE
     Dosage: 5 MILLIGRAM, QWK
  424. XELJANZ [Concomitant]
     Active Substance: TOFACITINIB CITRATE
  425. XELJANZ [Concomitant]
     Active Substance: TOFACITINIB CITRATE
     Dosage: 10 MILLIGRAM, QD
  426. TYLENOL WITH CODEINE [Concomitant]
     Active Substance: ACETAMINOPHEN\CODEINE PHOSPHATE
  427. TYLENOL WITH CODEINE [Concomitant]
     Active Substance: ACETAMINOPHEN\CODEINE PHOSPHATE
  428. TYLENOL WITH CODEINE [Concomitant]
     Active Substance: ACETAMINOPHEN\CODEINE PHOSPHATE
  429. LEVOTHYROXINE SODIUM [Concomitant]
     Active Substance: LEVOTHYROXINE SODIUM
  430. MELOXICAM [Concomitant]
     Active Substance: MELOXICAM
  431. PIROXICAM [Concomitant]
     Active Substance: PIROXICAM
  432. MAGNESIUM [Concomitant]
     Active Substance: MAGNESIUM
     Indication: Product used for unknown indication
  433. PREDNISOLONE [Concomitant]
     Active Substance: PREDNISOLONE
  434. DEXAMETHASONE [Concomitant]
     Active Substance: DEXAMETHASONE
  435. QUETIAPINE [Concomitant]
     Active Substance: QUETIAPINE
     Indication: Product used for unknown indication
  436. RAMIPRIL [Concomitant]
     Active Substance: RAMIPRIL
     Indication: Product used for unknown indication
  437. MARVELON [Concomitant]
     Active Substance: DESOGESTREL\ETHINYL ESTRADIOL
  438. LISINOPRIL [Concomitant]
     Active Substance: LISINOPRIL
  439. RISEDRONATE SODIUM [Concomitant]
     Active Substance: RISEDRONATE SODIUM
     Indication: Product used for unknown indication
  440. RISEDRONATE SODIUM [Concomitant]
     Active Substance: RISEDRONATE SODIUM
  441. ZOPICLONE [Concomitant]
     Active Substance: ZOPICLONE
  442. ZESTRIL [Concomitant]
     Active Substance: LISINOPRIL
  443. PANTOPRAZOLE [Concomitant]
     Active Substance: PANTOPRAZOLE
     Indication: Product used for unknown indication
  444. ALBUTEROL [Concomitant]
     Active Substance: ALBUTEROL
  445. CAFFEINE CITRATE [Concomitant]
     Active Substance: CAFFEINE CITRATE
     Indication: Product used for unknown indication
  446. CALCIUM GLUCONATE [Concomitant]
     Active Substance: CALCIUM GLUCONATE
  447. MORPHINE [Concomitant]
     Active Substance: MORPHINE
     Indication: Rheumatoid arthritis
  448. ERYTHROMYCIN [Concomitant]
     Active Substance: ERYTHROMYCIN
  449. ETHINYL ESTRADIOL [Concomitant]
     Active Substance: ETHINYL ESTRADIOL
  450. ACETAMINOPHEN\CODEINE PHOSPHATE [Concomitant]
     Active Substance: ACETAMINOPHEN\CODEINE PHOSPHATE
  451. AZATHIOPRINE [Concomitant]
     Active Substance: AZATHIOPRINE
  452. LISINOPRIL [Concomitant]
     Active Substance: LISINOPRIL
     Indication: Product used for unknown indication
  453. LISINOPRIL [Concomitant]
     Active Substance: LISINOPRIL
  454. HYDROCORTISONE [Concomitant]
     Active Substance: HYDROCORTISONE
     Indication: Rheumatoid arthritis
  455. HYDROCORTISONE [Concomitant]
     Active Substance: HYDROCORTISONE
  456. HYDROCORTISONE [Concomitant]
     Active Substance: HYDROCORTISONE
  457. HYDROCORTISONE [Concomitant]
     Active Substance: HYDROCORTISONE
  458. ERGOCALCIFEROL [Concomitant]
     Active Substance: ERGOCALCIFEROL
     Indication: Product used for unknown indication
  459. LORAZEPAM [Concomitant]
     Active Substance: LORAZEPAM
     Indication: Product used for unknown indication
  460. QUETIAPINE FUMARATE [Concomitant]
     Active Substance: QUETIAPINE FUMARATE
     Indication: Product used for unknown indication
  461. ACETAMINOPHEN\CAFFEINE\CODEINE PHOSPHATE [Concomitant]
     Active Substance: ACETAMINOPHEN\CAFFEINE\CODEINE PHOSPHATE
     Indication: Rheumatoid arthritis
  462. CHLOROQUINE [Concomitant]
     Active Substance: CHLOROQUINE
  463. ACETAMINOPHEN AND CODEINE [Concomitant]
     Active Substance: ACETAMINOPHEN\CODEINE PHOSPHATE
  464. DESOGESTREL\ETHINYL ESTRADIOL [Concomitant]
     Active Substance: DESOGESTREL\ETHINYL ESTRADIOL
  465. CHOLECALCIFEROL [Concomitant]
     Active Substance: CHOLECALCIFEROL
     Indication: Product used for unknown indication
  466. CHOLECALCIFEROL [Concomitant]
     Active Substance: CHOLECALCIFEROL
  467. CHOLECALCIFEROL [Concomitant]
     Active Substance: CHOLECALCIFEROL
  468. LANSOPRAZOLE [Concomitant]
     Active Substance: LANSOPRAZOLE
  469. CODEINE [Concomitant]
     Active Substance: CODEINE
  470. Caffeine;Dihydrocodeine;Paracetamol [Concomitant]
  471. ALENDRONATE SODIUM [Concomitant]
     Active Substance: ALENDRONATE SODIUM
     Indication: Product used for unknown indication
  472. ALENDRONIC ACID [Concomitant]
     Active Substance: ALENDRONIC ACID
     Indication: Product used for unknown indication
  473. PANTOPRAZOLE SODIUM ANHYDROUS [Concomitant]
     Active Substance: PANTOPRAZOLE SODIUM ANHYDROUS
     Indication: Product used for unknown indication
  474. ACETAMINOPHEN [Concomitant]
     Active Substance: ACETAMINOPHEN
     Indication: Product used for unknown indication
  475. ATIVAN [Concomitant]
     Active Substance: LORAZEPAM
     Indication: Anxiety
  476. CAFFEINE [Concomitant]
     Active Substance: CAFFEINE
     Indication: Product used for unknown indication
  477. DOCONEXENT [Concomitant]
     Active Substance: DOCONEXENT
     Indication: Product used for unknown indication
  478. CALCIUM GLUBIONATE [Concomitant]
     Active Substance: CALCIUM GLUBIONATE
     Indication: Product used for unknown indication
  479. ICOSAPENT [Concomitant]
     Active Substance: ICOSAPENT
     Indication: Product used for unknown indication
  480. ELBASVIR [Concomitant]
     Active Substance: ELBASVIR
     Indication: Product used for unknown indication
  481. GLUCOSAMINE [Concomitant]
     Active Substance: GLUCOSAMINE
     Indication: Product used for unknown indication
  482. IBUPROFEN [Concomitant]
     Active Substance: IBUPROFEN
     Indication: Product used for unknown indication
  483. LANSOPRAZOLE [Concomitant]
     Active Substance: LANSOPRAZOLE
     Indication: Product used for unknown indication
     Dosage: 30 MILLIGRAM, BID (2 EVERY 1 DAYS)
  484. SULFASALAZINE [Concomitant]
     Active Substance: SULFASALAZINE
     Indication: Product used for unknown indication
  485. HYDROCORTISONE SODIUM SUCCINATE [Concomitant]
     Active Substance: HYDROCORTISONE SODIUM SUCCINATE
     Indication: Rheumatoid arthritis

REACTIONS (193)
  - Insomnia [Fatal]
  - Abdominal discomfort [Fatal]
  - Abdominal pain [Fatal]
  - Abdominal pain upper [Fatal]
  - Alopecia [Fatal]
  - Anti-cyclic citrullinated peptide antibody positive [Fatal]
  - Anxiety [Fatal]
  - Arthralgia [Fatal]
  - Arthropathy [Fatal]
  - Asthenia [Fatal]
  - Asthma [Fatal]
  - Autoimmune disorder [Fatal]
  - Blister [Fatal]
  - Blood cholesterol increased [Fatal]
  - C-reactive protein [Fatal]
  - C-reactive protein abnormal [Fatal]
  - Chest pain [Fatal]
  - Condition aggravated [Fatal]
  - Confusional state [Fatal]
  - Contusion [Fatal]
  - Decreased appetite [Fatal]
  - Deep vein thrombosis postoperative [Fatal]
  - Diarrhoea [Fatal]
  - Discomfort [Fatal]
  - Dizziness [Fatal]
  - Drug hypersensitivity [Fatal]
  - Dyspnoea [Fatal]
  - Dry mouth [Fatal]
  - Fatigue [Fatal]
  - Fibromyalgia [Fatal]
  - Folliculitis [Fatal]
  - Gastrointestinal disorder [Fatal]
  - General physical health deterioration [Fatal]
  - Glossodynia [Fatal]
  - Hand deformity [Fatal]
  - Headache [Fatal]
  - Helicobacter infection [Fatal]
  - Hypersensitivity [Fatal]
  - Hypertension [Fatal]
  - Hypoaesthesia [Fatal]
  - Ill-defined disorder [Fatal]
  - Impaired healing [Fatal]
  - Infection [Fatal]
  - Infusion related reaction [Fatal]
  - Injury [Fatal]
  - Breast cancer stage II [Fatal]
  - Irritable bowel syndrome [Fatal]
  - Joint swelling [Fatal]
  - Lip dry [Fatal]
  - Live birth [Fatal]
  - Liver disorder [Fatal]
  - Liver injury [Fatal]
  - Lower limb fracture [Fatal]
  - Lower respiratory tract infection [Fatal]
  - Lung disorder [Fatal]
  - Malaise [Fatal]
  - Mobility decreased [Fatal]
  - Muscle injury [Fatal]
  - Musculoskeletal stiffness [Fatal]
  - Nasopharyngitis [Fatal]
  - Nausea [Fatal]
  - Night sweats [Fatal]
  - Oedema [Fatal]
  - Osteoarthritis [Fatal]
  - Pain [Fatal]
  - Pemphigus [Fatal]
  - Pericarditis [Fatal]
  - Peripheral swelling [Fatal]
  - Pruritus [Fatal]
  - Psoriatic arthropathy [Fatal]
  - Pyrexia [Fatal]
  - Rheumatic fever [Fatal]
  - Rheumatoid arthritis [Fatal]
  - Rheumatoid factor positive [Fatal]
  - Road traffic accident [Fatal]
  - Sciatica [Fatal]
  - Sinusitis [Fatal]
  - Sleep disorder due to general medical condition, insomnia type [Fatal]
  - Stomatitis [Fatal]
  - Swelling [Fatal]
  - Swollen joint count increased [Fatal]
  - Synovitis [Fatal]
  - Systemic lupus erythematosus [Fatal]
  - Therapeutic product effect decreased [Fatal]
  - Therapeutic response decreased [Fatal]
  - Therapy non-responder [Fatal]
  - Type 2 diabetes mellitus [Fatal]
  - Vomiting [Fatal]
  - Weight increased [Fatal]
  - Wheezing [Fatal]
  - Wound [Fatal]
  - Migraine [Fatal]
  - Dyspepsia [Fatal]
  - Muscle spasms [Fatal]
  - X-ray abnormal [Fatal]
  - Ear pain [Fatal]
  - Pneumonia [Fatal]
  - Respiratory disorder [Fatal]
  - Pulmonary fibrosis [Fatal]
  - Adverse drug reaction [Fatal]
  - Medication error [Fatal]
  - Facet joint syndrome [Fatal]
  - Inflammation [Fatal]
  - Sleep disorder [Fatal]
  - Obesity [Fatal]
  - Paraesthesia [Fatal]
  - Peripheral venous disease [Fatal]
  - Delirium [Fatal]
  - Lupus vulgaris [Fatal]
  - Prescribed underdose [Fatal]
  - Adjustment disorder with depressed mood [Fatal]
  - Amnesia [Fatal]
  - Gait disturbance [Fatal]
  - Dislocation of vertebra [Fatal]
  - Depression [Fatal]
  - Grip strength decreased [Fatal]
  - Memory impairment [Fatal]
  - Muscular weakness [Fatal]
  - Weight decreased [Fatal]
  - Wound infection [Fatal]
  - Musculoskeletal pain [Fatal]
  - Gait inability [Fatal]
  - Anti-cyclic citrullinated peptide antibody [Fatal]
  - Bursitis [Fatal]
  - Joint range of motion decreased [Fatal]
  - Hypercholesterolaemia [Fatal]
  - Blepharospasm [Fatal]
  - Epilepsy [Fatal]
  - Gastrooesophageal reflux disease [Fatal]
  - Taste disorder [Fatal]
  - Product quality issue [Fatal]
  - Breast cancer stage III [Fatal]
  - Arthritis [Fatal]
  - Bone erosion [Fatal]
  - Bronchitis [Fatal]
  - C-reactive protein increased [Fatal]
  - Crohn^s disease [Fatal]
  - Disability [Fatal]
  - Ear infection [Fatal]
  - Exostosis [Fatal]
  - Foot deformity [Fatal]
  - Hepatic cirrhosis [Fatal]
  - Hip arthroplasty [Fatal]
  - Joint dislocation [Fatal]
  - Joint stiffness [Fatal]
  - Knee arthroplasty [Fatal]
  - Laryngitis [Fatal]
  - Loss of personal independence in daily activities [Fatal]
  - Lupus-like syndrome [Fatal]
  - Oedema peripheral [Fatal]
  - Osteoporosis [Fatal]
  - Pain in extremity [Fatal]
  - Psoriasis [Fatal]
  - Red blood cell sedimentation rate increased [Fatal]
  - Retinitis [Fatal]
  - Seronegative arthritis [Fatal]
  - Spinal fusion surgery [Fatal]
  - Spondylitis [Fatal]
  - Tachycardia [Fatal]
  - Upper respiratory tract infection [Fatal]
  - Visual impairment [Fatal]
  - Walking aid user [Fatal]
  - Pregnancy [Fatal]
  - Adverse event [Fatal]
  - Leukopenia [Fatal]
  - Back disorder [Fatal]
  - Fluid retention [Fatal]
  - General symptom [Fatal]
  - Myositis [Fatal]
  - Nail disorder [Fatal]
  - Treatment failure [Fatal]
  - Incorrect route of product administration [Fatal]
  - Product use issue [Fatal]
  - Prescribed overdose [Fatal]
  - Drug intolerance [Fatal]
  - Drug ineffective [Fatal]
  - Product use in unapproved indication [Fatal]
  - Intentional product use issue [Fatal]
  - Off label use [Fatal]
  - Urticaria [Fatal]
  - Liver function test increased [Fatal]
  - Drug-induced liver injury [Fatal]
  - Rash [Fatal]
  - Hepatic enzyme increased [Fatal]
  - Hypertransaminasaemia [Fatal]
  - Duodenal ulcer perforation [Fatal]
  - Maternal exposure during pregnancy [Fatal]
  - Maternal exposure timing unspecified [Fatal]
  - Hypocholesterolaemia [Fatal]
  - Exposure during pregnancy [Fatal]
  - Contraindicated product administered [Fatal]
  - Drug tolerance decreased [Fatal]
  - Drug ineffective for unapproved indication [Fatal]
